FAERS Safety Report 17269892 (Version 7)
Quarter: 2020Q1

REPORT INFORMATION
  Report Type: Spontaneous
  Country: US (occurrence: US)
  Receive Date: 20200114
  Receipt Date: 20200224
  Transmission Date: 20200409
  Serious: Yes (Other)
  Sender: FDA-Public Use
  Company Number: US-PFIZER INC-2020013432

PATIENT
  Age: 61 Year
  Sex: Female
  Weight: 58.6 kg

DRUGS (5)
  1. LEVOXYL [Concomitant]
     Active Substance: LEVOTHYROXINE SODIUM
     Indication: AUTOIMMUNE THYROIDITIS
     Dosage: 0.75 MG, UNK
  2. COSOPT [Concomitant]
     Active Substance: DORZOLAMIDE HYDROCHLORIDE\TIMOLOL MALEATE
     Indication: GLAUCOMA
     Dosage: 2 GTT, 1X/DAY, (ONE DROP IN HER EYES, IN THE MORNING)
  3. PHOSPHOLINE IODIDE [Suspect]
     Active Substance: ECHOTHIOPHATE IODIDE
     Indication: INTRAOCULAR PRESSURE INCREASED
     Dosage: 1 GTT, 1X/DAY(1GTT H.S(BEFORE BED) O.S.(LEFT EYE)
  4. PHOSPHOLINE IODIDE [Suspect]
     Active Substance: ECHOTHIOPHATE IODIDE
     Indication: GLAUCOMA
     Dosage: UNK
     Dates: start: 202001
  5. PHOSPHOLINE IODIDE [Suspect]
     Active Substance: ECHOTHIOPHATE IODIDE
     Indication: EYE HAEMORRHAGE
     Dosage: UNK

REACTIONS (5)
  - Expired product administered [Unknown]
  - Disease recurrence [Unknown]
  - Circumstance or information capable of leading to medication error [Unknown]
  - Cataract [Unknown]
  - Aphakic glaucoma [Unknown]
